FAERS Safety Report 9373407 (Version 1)
Quarter: 2013Q2

REPORT INFORMATION
  Report Type: Report from Study
  Country: US (occurrence: US)
  Receive Date: 20130627
  Receipt Date: 20130627
  Transmission Date: 20140414
  Serious: Yes (Hospitalization, Other)
  Sender: FDA-Public Use
  Company Number: US-ABBOTT-13P-163-1108058-00

PATIENT
  Age: 61 Year
  Sex: Male

DRUGS (7)
  1. HUMIRA [Suspect]
     Indication: COLITIS ULCERATIVE
     Route: 058
     Dates: start: 20130126, end: 20130517
  2. HUMIRA [Suspect]
     Dosage: 4-40 MG INJECTIONS
     Route: 058
     Dates: start: 20130517, end: 20130517
  3. PREDNISONE [Concomitant]
     Indication: COLITIS ULCERATIVE
  4. LIPITOR [Concomitant]
     Indication: CARDIOVASCULAR DISORDER
  5. TOPROL [Concomitant]
     Indication: CARDIOVASCULAR DISORDER
  6. ASPIRIN [Concomitant]
     Indication: CARDIAC DISORDER
  7. ASPIRIN [Concomitant]
     Indication: STEROID THERAPY

REACTIONS (6)
  - Haematochezia [Recovered/Resolved]
  - Gastrointestinal pain [Recovered/Resolved]
  - Gastrointestinal pain [Recovered/Resolved]
  - Haematochezia [Recovered/Resolved]
  - Frequent bowel movements [Recovered/Resolved]
  - Drug ineffective [Unknown]
